FAERS Safety Report 9208854 (Version 1)
Quarter: 2013Q2

REPORT INFORMATION
  Report Type: Spontaneous
  Country: US (occurrence: US)
  Receive Date: 20130404
  Receipt Date: 20130404
  Transmission Date: 20140414
  Serious: Yes (Other)
  Sender: FDA-Public Use
  Company Number: US-JNJFOC-20130316537

PATIENT
  Age: 17 Year
  Sex: Female

DRUGS (1)
  1. TOPAMAX [Suspect]
     Indication: MIGRAINE PROPHYLAXIS
     Route: 048
     Dates: start: 201204

REACTIONS (7)
  - Haemorrhage [Unknown]
  - Cognitive disorder [Unknown]
  - Amnesia [Unknown]
  - Splenomegaly [Unknown]
  - Convulsion [Unknown]
  - Migraine [Unknown]
  - Anaemia [Unknown]
